FAERS Safety Report 7990974-4 (Version None)
Quarter: 2011Q4

REPORT INFORMATION
  Report Type: 
  Country: None (occurrence: None)
  Receive Date: 20111219
  Receipt Date: 20111212
  Transmission Date: 20120403
  Serious: Yes (Death)
  Sender: FDA-Public Use
  Company Number: IT-SANOFI-AVENTIS-2011SA081649

PATIENT

DRUGS (4)
  1. OXALIPLATIN [Suspect]
     Dosage: FOR 2 HOURS
     Route: 042
  2. FLUOROURACIL [Suspect]
     Route: 042
  3. ANTINEOPLASTIC AGENTS [Suspect]
     Dosage: FOR 1 HOUR
     Route: 042
  4. THERAPEUTIC RADIOPHARMACEUTICALS [Suspect]
     Dosage: AT A DOSE OF 5040 CGY WAS DELIVERED IN 28 DAILY FRACTIONS OF 1.8 GY, ON 5 CONSECUTIVE DAYS PER WEEK
     Route: 065

REACTIONS (1)
  - DIARRHOEA [None]
